FAERS Safety Report 4365682-1 (Version None)
Quarter: 2004Q2

REPORT INFORMATION
  Report Type: 
  Country: None (occurrence: None)
  Receive Date: 20040520
  Receipt Date: 20040430
  Transmission Date: 20050107
  Serious: Yes (Death)
  Sender: FDA-Public Use
  Company Number: 206560

PATIENT
  Age: 11 Year
  Sex: Male

DRUGS (2)
  1. PROTROPIN [Suspect]
     Dosage: 1/WEK, SUBCUTANEOUS
     Route: 058
     Dates: start: 20010101, end: 20030101
  2. CLONIDINE [Concomitant]

REACTIONS (2)
  - CONDITION AGGRAVATED [None]
  - NEUROBLASTOMA [None]
